FAERS Safety Report 23953358 (Version 1)
Quarter: 2024Q2

REPORT INFORMATION
  Report Type: Spontaneous
  Country: US (occurrence: US)
  Receive Date: 20240608
  Receipt Date: 20240608
  Transmission Date: 20240716
  Serious: Yes (Other)
  Sender: FDA-Public Use
  Company Number: US-SPECGX-T202301711

PATIENT
  Age: 71 Year

DRUGS (1)
  1. ACETAMINOPHEN\HYDROCODONE [Suspect]
     Active Substance: ACETAMINOPHEN\HYDROCODONE
     Indication: Pain management
     Dosage: AS NEEDED (4 TIMES A DAY)
     Route: 065

REACTIONS (4)
  - Drug dependence [Unknown]
  - Loss of personal independence in daily activities [Unknown]
  - Drug screen negative [Unknown]
  - Drug ineffective [Unknown]
